FAERS Safety Report 5690820-8 (Version None)
Quarter: 2008Q2

REPORT INFORMATION
  Report Type: 
  Country: None (occurrence: None)
  Receive Date: 20080401
  Receipt Date: 20080401
  Transmission Date: 20081010
  Serious: Yes (Hospitalization, Other)
  Sender: FDA-Public Use
  Company Number: B0511927A

PATIENT
  Age: 6 Year
  Sex: Female
  Weight: 28 kg

DRUGS (1)
  1. SERETIDE [Suspect]
     Indication: ASTHMA
     Route: 055
     Dates: start: 20071218, end: 20080110

REACTIONS (2)
  - SOMNOLENCE [None]
  - SYNCOPE [None]
